FAERS Safety Report 6065956-2 (Version None)
Quarter: 2009Q1

REPORT INFORMATION
  Report Type: 
  Country: None (occurrence: None)
  Receive Date: 20090130
  Receipt Date: 20090121
  Transmission Date: 20090719
  Serious: Yes (Hospitalization)
  Sender: FDA-Public Use
  Company Number: 6048572

PATIENT
  Age: 68 Year
  Sex: Female

DRUGS (7)
  1. BISOPROLOL FUMARATE [Suspect]
     Indication: DRUG USE FOR UNKNOWN INDICATION
     Dosage: 15 MG ORAL ; ORAL
     Route: 048
     Dates: end: 20070401
  2. BISOPROLOL FUMARATE [Suspect]
     Indication: DRUG USE FOR UNKNOWN INDICATION
     Dosage: 15 MG ORAL ; ORAL
     Route: 048
     Dates: start: 20070101
  3. COAPROVEL (HYDROCHLOROTHIAZIDE, IRBESARTAN) [Concomitant]
  4. ASPEGIC 1000 [Concomitant]
  5. INDAPAMIDE [Concomitant]
  6. COUMADIN [Concomitant]
  7. DESLORATADINE [Concomitant]

REACTIONS (5)
  - LYMPHADENOPATHY [None]
  - MYALGIA [None]
  - PALPITATIONS [None]
  - PULMONARY FIBROSIS [None]
  - RESTRICTIVE PULMONARY DISEASE [None]
